FAERS Safety Report 4708332-4 (Version None)
Quarter: 2005Q2

REPORT INFORMATION
  Report Type: 
  Country: None (occurrence: None)
  Receive Date: 20050630
  Receipt Date: 20050616
  Transmission Date: 20051028
  Serious: Yes (Death, Hospitalization)
  Sender: FDA-Public Use
  Company Number: THYM-10352

PATIENT
  Age: 66 Year
  Sex: Male

DRUGS (34)
  1. THYMOGLOBULIN [Suspect]
     Indication: RENAL TRANSPLANT
     Dosage: 100 MG QD IV
     Route: 042
     Dates: start: 20041007, end: 20041007
  2. THYMOGLOBULIN [Suspect]
     Indication: RENAL TRANSPLANT
     Dosage: 150 MG QD IV
     Route: 042
     Dates: start: 20041009, end: 20041009
  3. VERAPAMIL [Concomitant]
  4. MORPHINE [Concomitant]
  5. DIPRIVAN [Concomitant]
  6. FENTANYL [Concomitant]
  7. NPH INSULIN [Concomitant]
  8. METOPROLOL [Concomitant]
  9. CALCIUM ACETATE [Concomitant]
  10. ACETAMINOPHEN [Concomitant]
  11. PROTONIX [Concomitant]
  12. ALBUMIN (HUMAN) [Concomitant]
  13. ARINESP [Concomitant]
  14. PAXIL [Concomitant]
  15. DOPAMINE HCL [Concomitant]
  16. REGULAR INSULIN [Concomitant]
  17. LASIX [Concomitant]
  18. NYSTATIN [Concomitant]
  19. COLACE [Concomitant]
  20. PEPCID [Concomitant]
  21. CELLCEPT [Concomitant]
  22. ANCEF [Concomitant]
  23. PREDNISONE [Concomitant]
  24. CIPROFLOXACIN [Concomitant]
  25. PLETAL [Concomitant]
  26. HECTOROL [Concomitant]
  27. ALTACE [Concomitant]
  28. ZOCOR [Concomitant]
  29. RENAGEL [Concomitant]
  30. PREVACID [Concomitant]
  31. NOVOLOG [Concomitant]
  32. QUININE SULFATE [Concomitant]
  33. ASPIRIN [Concomitant]
  34. NEURONTIN [Concomitant]

REACTIONS (20)
  - ACUTE RESPIRATORY DISTRESS SYNDROME [None]
  - AGITATION [None]
  - ANXIETY [None]
  - ATRIOVENTRICULAR BLOCK FIRST DEGREE [None]
  - CONFUSIONAL STATE [None]
  - CORONARY ARTERY DISEASE [None]
  - DRUG TOXICITY [None]
  - KIDNEY TRANSPLANT REJECTION [None]
  - LUNG INFECTION PSEUDOMONAL [None]
  - MENTAL STATUS CHANGES [None]
  - MYOCARDIAL INFARCTION [None]
  - NON-CARDIOGENIC PULMONARY OEDEMA [None]
  - PAIN IN EXTREMITY [None]
  - PULMONARY EMBOLISM [None]
  - PULMONARY HYPERTENSION [None]
  - RENAL TUBULAR NECROSIS [None]
  - RESPIRATORY FAILURE [None]
  - RESTLESSNESS [None]
  - SEPSIS [None]
  - SINUSITIS [None]
